FAERS Safety Report 6906809-4 (Version None)
Quarter: 2010Q3

REPORT INFORMATION
  Report Type: 
  Country: None (occurrence: None)
  Receive Date: 20100804
  Receipt Date: 20100726
  Transmission Date: 20110219
  Serious: Yes (Hospitalization, Other)
  Sender: FDA-Public Use
  Company Number: JP-B.I. PHARMACEUTICALS,INC./RIDGEFIELD-2010-BP-08520NB

PATIENT
  Sex: Female

DRUGS (5)
  1. MICARDIS [Suspect]
     Dosage: 40 MG
     Route: 048
  2. CELECOX [Suspect]
     Dosage: 200 MG
     Route: 048
     Dates: start: 20100617
  3. BESASTAR SR [Concomitant]
     Route: 048
  4. GLAKAY [Concomitant]
     Route: 048
  5. SELBEX [Concomitant]
     Route: 048
     Dates: start: 20100617

REACTIONS (5)
  - DIZZINESS [None]
  - LOSS OF CONSCIOUSNESS [None]
  - LUMBAR VERTEBRAL FRACTURE [None]
  - PRURITUS [None]
  - SKIN LACERATION [None]
